FAERS Safety Report 4472014-7 (Version None)
Quarter: 2004Q4

REPORT INFORMATION
  Report Type: 
  Country: None (occurrence: None)
  Receive Date: 20041007
  Receipt Date: 20040929
  Transmission Date: 20050328
  Serious: Yes (Other)
  Sender: FDA-Public Use
  Company Number: 2004052059

PATIENT
  Age: 81 Year
  Sex: Female
  Weight: 68 kg

DRUGS (5)
  1. CARDURA [Suspect]
     Indication: BLOOD PRESSURE INCREASED
     Dosage: 8 MG (8 MG, 1 IN 1 D), ORAL
     Route: 048
  2. TEMAZEPAM [Concomitant]
  3. ASPIRIN [Concomitant]
  4. BUMETANIDE [Concomitant]
  5. ISOSORBIDE MONONITRATE [Concomitant]

REACTIONS (2)
  - CARDIAC FAILURE [None]
  - JOINT SWELLING [None]
